FAERS Safety Report 5848640-7 (Version None)
Quarter: 2008Q3

REPORT INFORMATION
  Report Type: 
  Country: None (occurrence: None)
  Receive Date: 20080818
  Receipt Date: 20080811
  Transmission Date: 20090109
  Serious: Yes (Hospitalization, Other)
  Sender: FDA-Public Use
  Company Number: ES-SANOFI-SYNTHELABO-A01200809533

PATIENT
  Age: 42 Year
  Sex: Female

DRUGS (3)
  1. CALCIUM FOLINATE [Concomitant]
     Indication: COLON CANCER
     Route: 041
  2. ELOXATIN [Suspect]
     Indication: COLON CANCER
     Route: 041
     Dates: start: 20080630, end: 20080630
  3. FLUOROURACILO [Concomitant]
     Indication: COLON CANCER
     Dosage: UNK
     Route: 042

REACTIONS (3)
  - ACUTE RESPIRATORY FAILURE [None]
  - LARYNGOSPASM [None]
  - TACHYCARDIA [None]
